FAERS Safety Report 8305660-0 (Version None)
Quarter: 2012Q2

REPORT INFORMATION
  Report Type: 
  Country: None (occurrence: None)
  Receive Date: 20120423
  Receipt Date: 20120416
  Transmission Date: 20120825
  Serious: Yes (Other)
  Sender: FDA-Public Use
  Company Number: US-PFIZER INC-2012095127

PATIENT
  Age: 62 Year
  Sex: Female

DRUGS (1)
  1. LYRICA [Suspect]
     Indication: FIBROMYALGIA
     Dosage: UNK

REACTIONS (6)
  - CARDIAC DISORDER [None]
  - BACK DISORDER [None]
  - VISUAL ACUITY REDUCED [None]
  - TOOTH LOSS [None]
  - TOOTH ABSCESS [None]
  - MYOCARDIAL INFARCTION [None]
